FAERS Safety Report 13940521 (Version 1)
Quarter: 2017Q3

REPORT INFORMATION
  Report Type: Spontaneous
  Country: NG (occurrence: NG)
  Receive Date: 20170906
  Receipt Date: 20170906
  Transmission Date: 20171127
  Serious: Yes (Other)
  Sender: FDA-Public Use
  Company Number: PHHY2017NG127513

PATIENT
  Age: 37 Year
  Sex: Female

DRUGS (5)
  1. CEFUROXIME. [Suspect]
     Active Substance: CEFUROXIME
     Indication: POSTPARTUM HAEMORRHAGE
     Dosage: 1.5 G, Q8H
     Route: 042
  2. METRONIDAZOLE. [Suspect]
     Active Substance: METRONIDAZOLE
     Indication: POSTPARTUM HAEMORRHAGE
     Dosage: 500 MG, Q8H
     Route: 042
  3. ERGOMETRINE [Suspect]
     Active Substance: ERGONOVINE MALEATE
     Indication: POSTPARTUM HAEMORRHAGE
     Dosage: 0.5 MG, UNK
     Route: 042
  4. NORMAL SALINE [Concomitant]
     Active Substance: SODIUM CHLORIDE
     Indication: PRODUCT USED FOR UNKNOWN INDICATION
     Dosage: 500 ML, UNK
     Route: 042
  5. OXYTOCIN. [Suspect]
     Active Substance: OXYTOCIN
     Indication: POSTPARTUM HAEMORRHAGE
     Dosage: 40 IU, UNK
     Route: 042

REACTIONS (2)
  - Postpartum haemorrhage [Recovered/Resolved]
  - Uterine atony [Recovered/Resolved]
